FAERS Safety Report 5932738-9 (Version None)
Quarter: 2008Q4

REPORT INFORMATION
  Report Type: 
  Country: None (occurrence: None)
  Receive Date: 20081028
  Receipt Date: 20081015
  Transmission Date: 20090506
  Serious: Yes (Hospitalization)
  Sender: FDA-Public Use
  Company Number: US-ELI_LILLY_AND_COMPANY-US200809004752

PATIENT
  Sex: Female

DRUGS (9)
  1. EVISTA [Suspect]
     Indication: OSTEOPOROSIS
     Dosage: 60 MG, DAILY (1/D)
     Route: 065
     Dates: start: 20080902, end: 20080911
  2. VALIUM [Concomitant]
     Dosage: UNK, UNKNOWN
     Route: 065
  3. CARDIZEM LA [Concomitant]
     Indication: HYPERTENSION
     Dosage: 240 MG, DAILY (1/D)
     Route: 065
  4. TOPROL-XL [Concomitant]
     Indication: HYPERTENSION
     Dosage: 100 MG, DAILY (1/D)
     Route: 065
  5. EFFEXOR XR [Concomitant]
     Indication: DEPRESSION
     Dosage: 150 MG, DAILY (1/D)
     Route: 065
  6. LYRICA [Concomitant]
     Indication: PAIN
     Dosage: 100 MG, 2/D
     Route: 065
  7. SPIRONOLACTONE [Concomitant]
     Indication: HYPERTENSION
     Dosage: 50 MG, 2/D
     Route: 065
  8. MAXZIDE [Concomitant]
     Dosage: UNK, UNKNOWN
     Route: 065
  9. KEFLEX [Concomitant]
     Dosage: 250 MG, 2/D
     Route: 065

REACTIONS (13)
  - ABDOMINAL PAIN UPPER [None]
  - AGITATION [None]
  - BONE PAIN [None]
  - DEHYDRATION [None]
  - DIZZINESS [None]
  - HAEMATOMA [None]
  - INFLUENZA [None]
  - MEMORY IMPAIRMENT [None]
  - PAIN [None]
  - RASH [None]
  - SOMNOLENCE [None]
  - TOOTHACHE [None]
  - VISION BLURRED [None]
